FAERS Safety Report 4402278-7 (Version None)
Quarter: 2004Q3

REPORT INFORMATION
  Report Type: 
  Country: None (occurrence: None)
  Receive Date: 20040720
  Receipt Date: 20040716
  Transmission Date: 20050211
  Serious: Yes (Other)
  Sender: FDA-Public Use
  Company Number: US-GLAXOSMITHKLINE-A0518769A

PATIENT
  Sex: Male

DRUGS (2)
  1. PAXIL [Suspect]
     Indication: DEPRESSION
  2. WELLBUTRIN [Suspect]
     Indication: DEPRESSION

REACTIONS (6)
  - AGGRESSION [None]
  - INJURY [None]
  - INJURY ASPHYXIATION [None]
  - MOOD SWINGS [None]
  - PHYSICAL ASSAULT [None]
  - SEXUAL ASSAULT VICTIM [None]
